FAERS Safety Report 20472909 (Version 2)
Quarter: 2022Q1

REPORT INFORMATION
  Report Type: Spontaneous
  Country: US (occurrence: US)
  Receive Date: 20220215
  Receipt Date: 20220223
  Transmission Date: 20220423
  Serious: Yes (Other)
  Sender: FDA-Public Use
  Company Number: US-CELLTRION INC.-2022US001415

PATIENT

DRUGS (2)
  1. TRUXIMA [Suspect]
     Active Substance: RITUXIMAB-ABBS
     Indication: Post transplant lymphoproliferative disorder
     Dosage: 375 MG/M2 WEEKLY X 3 DOSES
     Dates: start: 20220202
  2. TRUXIMA [Suspect]
     Active Substance: RITUXIMAB-ABBS
     Indication: Lung transplant

REACTIONS (2)
  - Lung transplant [Unknown]
  - Off label use [Unknown]
